FAERS Safety Report 4527075-3 (Version None)
Quarter: 2004Q4

REPORT INFORMATION
  Report Type: 
  Country: None (occurrence: None)
  Receive Date: 20041129
  Receipt Date: 20040615
  Transmission Date: 20050328
  Serious: Yes (Hospitalization, Disabling, Other)
  Sender: FDA-Public Use
  Company Number: USA040360781

PATIENT
  Age: 37 Year
  Sex: Male
  Weight: 112 kg

DRUGS (8)
  1. ZYPREXA [Suspect]
     Indication: SCHIZOPHRENIA, PARANOID TYPE
     Dosage: 50 MG/1 AT BEDTIME
     Dates: start: 20031119
  2. COGENTIN [Concomitant]
  3. VITAMIN E [Concomitant]
  4. MULTI-VITAMIN [Concomitant]
  5. SYNTHROID [Concomitant]
  6. CASANTHRANOL W/DOCUSATE SODIUM [Concomitant]
  7. HALDOL [Concomitant]
  8. PAXIL [Concomitant]

REACTIONS (9)
  - BLOOD CREATININE DECREASED [None]
  - BLOOD IRON DECREASED [None]
  - CONVULSION [None]
  - DYSPNOEA [None]
  - HAEMATOCRIT DECREASED [None]
  - HAEMOGLOBIN DECREASED [None]
  - HYPONATRAEMIA [None]
  - PRESCRIBED OVERDOSE [None]
  - RED BLOOD CELL COUNT DECREASED [None]
